FAERS Safety Report 20091764 (Version 1)
Quarter: 2021Q4

REPORT INFORMATION
  Report Type: Spontaneous
  Country: CN (occurrence: None)
  Receive Date: 20211119
  Receipt Date: 20211119
  Transmission Date: 20220303
  Serious: Yes (Other)
  Sender: FDA-Public Use
  Company Number: 2021A806674

PATIENT
  Age: 56 Year
  Sex: Female
  Weight: 65 kg

DRUGS (5)
  1. PULMICORT TURBUHALER [Suspect]
     Active Substance: BUDESONIDE
     Indication: Cough
     Route: 055
     Dates: start: 20211004, end: 20211004
  2. PULMICORT TURBUHALER [Suspect]
     Active Substance: BUDESONIDE
     Indication: Productive cough
     Route: 055
     Dates: start: 20211004, end: 20211004
  3. BRICANYL [Concomitant]
     Active Substance: TERBUTALINE SULFATE
     Indication: Cough
     Route: 055
     Dates: start: 20211004, end: 20211004
  4. BRICANYL [Concomitant]
     Active Substance: TERBUTALINE SULFATE
     Indication: Productive cough
     Route: 055
     Dates: start: 20211004, end: 20211004
  5. OXYGEN [Concomitant]
     Active Substance: OXYGEN
     Route: 055
     Dates: start: 20211004, end: 20211004

REACTIONS (2)
  - Chest discomfort [Recovered/Resolved]
  - Dyspnoea [Recovered/Resolved]

NARRATIVE: CASE EVENT DATE: 20211004
